FAERS Safety Report 22193673 (Version 1)
Quarter: 2023Q2

REPORT INFORMATION
  Report Type: Spontaneous
  Country: ES (occurrence: ES)
  Receive Date: 20230410
  Receipt Date: 20230410
  Transmission Date: 20230721
  Serious: Yes (Hospitalization, Other)
  Sender: FDA-Public Use
  Company Number: None

PATIENT
  Age: 62 Year
  Sex: Male
  Weight: 68 kg

DRUGS (7)
  1. VINCRISTINE [Suspect]
     Active Substance: VINCRISTINE
     Indication: Non-Hodgkin^s lymphoma
     Dosage: VINCRISTINA (809A)
     Route: 065
     Dates: start: 20230312, end: 20230312
  2. DOXORUBICIN HYDROCHLORIDE [Suspect]
     Active Substance: DOXORUBICIN HYDROCHLORIDE
     Indication: Non-Hodgkin^s lymphoma
     Dosage: DOXORUBICINA (202A)
     Route: 065
     Dates: start: 20230312, end: 20230312
  3. METHOTREXATE (METHOTREXATE SODIUM) [Suspect]
     Active Substance: METHOTREXATE SODIUM
     Indication: Non-Hodgkin^s lymphoma
     Dosage: METOTREXATO (418A)
     Route: 065
     Dates: start: 20230312, end: 20230312
  4. RITUXIMAB [Suspect]
     Active Substance: RITUXIMAB
     Indication: Non-Hodgkin^s lymphoma
     Dosage: RITUXIMAB (2814A)
     Route: 065
     Dates: start: 20230312, end: 20230312
  5. CYTARABINE [Suspect]
     Active Substance: CYTARABINE
     Indication: Non-Hodgkin^s lymphoma
     Dosage: CITARABINA (124A)
     Route: 065
     Dates: start: 20230312, end: 20230312
  6. DEXAMETHASONE [Suspect]
     Active Substance: DEXAMETHASONE
     Indication: Non-Hodgkin^s lymphoma
     Dosage: DEXAMETASONA (722A)
     Route: 065
     Dates: start: 20230312, end: 20230312
  7. CYCLOPHOSPHAMIDE [Suspect]
     Active Substance: CYCLOPHOSPHAMIDE
     Indication: Non-Hodgkin^s lymphoma
     Dosage: CICLOFOSFAMIDA (120A)
     Route: 065
     Dates: start: 20230312, end: 20230312

REACTIONS (2)
  - Febrile neutropenia [Recovering/Resolving]
  - Neutropenia [Recovering/Resolving]

NARRATIVE: CASE EVENT DATE: 20230320
